FAERS Safety Report 6928001-X (Version None)
Quarter: 2010Q3

REPORT INFORMATION
  Report Type: 
  Country: None (occurrence: None)
  Receive Date: 20100817
  Receipt Date: 20100811
  Transmission Date: 20110219
  Serious: Yes (Other)
  Sender: FDA-Public Use
  Company Number: AU-BRISTOL-MYERS SQUIBB COMPANY-15233554

PATIENT
  Age: 46 Year
  Sex: Male

DRUGS (3)
  1. CARBOPLATIN [Suspect]
     Indication: GLIOBLASTOMA MULTIFORME
  2. ETOPOSIDE [Suspect]
     Indication: GLIOBLASTOMA MULTIFORME
  3. AVASTIN [Suspect]
     Indication: GLIOBLASTOMA MULTIFORME
     Dosage: 10MG/KG ON DAY 2 OF EVERY 3 WEEK CYCLE.

REACTIONS (1)
  - CEREBRAL ISCHAEMIA [None]
